FAERS Safety Report 7321123-3 (Version None)
Quarter: 2011Q1

REPORT INFORMATION
  Report Type: 
  Country: None (occurrence: None)
  Receive Date: 20110228
  Receipt Date: 20110218
  Transmission Date: 20110831
  Serious: Yes (Hospitalization, Other)
  Sender: FDA-Public Use
  Company Number: US-ASTRAZENECA-2011SE09783

PATIENT
  Age: 74 Year
  Sex: Female

DRUGS (22)
  1. AEROVENT [Concomitant]
     Dates: start: 20101223, end: 20101229
  2. ENOXAPARIN SODIUM [Suspect]
     Indication: THROMBOSIS PROPHYLAXIS
     Route: 058
     Dates: start: 20101209, end: 20101215
  3. ETODOLAC [Suspect]
  4. PLACEBO [Suspect]
  5. BISOPROLOL FUMARATE [Concomitant]
     Dates: start: 20101224
  6. BISOPROLOL FUMARATE [Concomitant]
     Dates: start: 20101230
  7. STATIN [Concomitant]
  8. AMLODIPINE [Concomitant]
     Dates: start: 20101215
  9. LACTULOSE [Concomitant]
     Dates: start: 20101224
  10. PRILOSEC [Concomitant]
     Dates: start: 20101210
  11. CARTIA XT [Concomitant]
     Dates: start: 20060907
  12. FOSALAN [Concomitant]
     Dates: start: 20050726
  13. PREDNISONE [Concomitant]
     Dates: start: 20101214
  14. SINGULAIR [Concomitant]
     Dates: start: 20101215
  15. APIXABAN [Suspect]
     Indication: THROMBOSIS PROPHYLAXIS
     Dosage: TWO TABLETS
     Route: 048
     Dates: start: 20101209, end: 20101223
  16. PLACEBO [Suspect]
     Indication: THROMBOSIS PROPHYLAXIS
     Dates: start: 20101209, end: 20101201
  17. DERALIN [Concomitant]
     Dates: start: 20101210
  18. FLUTICASONE PROPIONATE [Concomitant]
     Dates: start: 20101223, end: 20101229
  19. CRESTOR [Suspect]
     Route: 048
  20. APIXABAN [Suspect]
     Dosage: TWO TABLETS
     Route: 048
     Dates: start: 20101224, end: 20110106
  21. APIXABAN [Suspect]
     Dosage: TWO TABLETS
     Route: 048
  22. FUSID [Concomitant]
     Dates: start: 20100829, end: 20101224

REACTIONS (6)
  - URINARY TRACT INFECTION BACTERIAL [None]
  - LIVER FUNCTION TEST ABNORMAL [None]
  - PERIPHERAL EMBOLISM [None]
  - CELLULITIS [None]
  - CHOLECYSTITIS [None]
  - CHOLELITHIASIS [None]
